FAERS Safety Report 10744416 (Version 3)
Quarter: 2015Q4

REPORT INFORMATION
  Report Type: Report from Study
  Country: US (occurrence: US)
  Receive Date: 20150128
  Receipt Date: 20151015
  Transmission Date: 20160304
  Serious: No
  Sender: FDA-Public Use
  Company Number: US-SA-2014SA148430

PATIENT
  Age: 55 Year
  Sex: Female
  Weight: 66.04 kg

DRUGS (30)
  1. CRESTOR [Concomitant]
     Active Substance: ROSUVASTATIN CALCIUM
  2. ZETIA [Concomitant]
     Active Substance: EZETIMIBE
  3. EZETIMIBE. [Concomitant]
     Active Substance: EZETIMIBE
     Route: 048
  4. GABAPENTIN. [Concomitant]
     Active Substance: GABAPENTIN
     Route: 048
  5. LAMOTRIGINE. [Concomitant]
     Active Substance: LAMOTRIGINE
     Dosage: 1/2 TABLET TWICE A DAY
  6. LISINOPRIL. [Concomitant]
     Active Substance: LISINOPRIL
     Route: 048
  7. LORATADINE. [Concomitant]
     Active Substance: LORATADINE
  8. PROPRANOLOL HYDROCHLORIDE. [Concomitant]
     Active Substance: PROPRANOLOL HYDROCHLORIDE
  9. CYCLOBENZAPRINE HYDROCHLORIDE. [Concomitant]
     Active Substance: CYCLOBENZAPRINE HYDROCHLORIDE
  10. OXYBUTYNIN CHLORIDE. [Concomitant]
     Active Substance: OXYBUTYNIN CHLORIDE
  11. ALBUTEROL SULFATE. [Concomitant]
     Active Substance: ALBUTEROL SULFATE
     Dosage: 1 PUFF EVERY 4-6HOURS AS NEEDED.
     Route: 055
  12. BUDESONIDE/FORMOTEROL FUMARATE [Concomitant]
     Dosage: 160-4.5 MCG
     Route: 055
  13. DEXLANSOPRAZOLE [Concomitant]
     Active Substance: DEXLANSOPRAZOLE
  14. MECLIZINE [Concomitant]
     Active Substance: MECLIZINE\MECLIZINE HYDROCHLORIDE
     Route: 048
  15. SEROQUEL [Concomitant]
     Active Substance: QUETIAPINE FUMARATE
     Indication: MENTAL DISORDER
  16. ASPIRIN. [Concomitant]
     Active Substance: ASPIRIN
     Route: 048
  17. TIOTROPIUM BROMIDE [Concomitant]
     Active Substance: TIOTROPIUM BROMIDE
     Route: 055
  18. VARENICLINE TARTRATE [Concomitant]
     Active Substance: VARENICLINE TARTRATE
     Route: 048
  19. TRILIPIX [Concomitant]
     Active Substance: FENOFIBRIC ACID
  20. JUXTAPID [Concomitant]
     Active Substance: LOMITAPIDE MESYLATE
  21. ALPRAZOLAM. [Concomitant]
     Active Substance: ALPRAZOLAM
  22. QUETIAPINE FUMARATE. [Concomitant]
     Active Substance: QUETIAPINE FUMARATE
     Dosage: TAKE 2 1/2 TABLET ORAL EVERY DAY
     Route: 048
  23. ROSUVASTATIN [Concomitant]
     Active Substance: ROSUVASTATIN
     Route: 048
  24. TRAVOPROST [Concomitant]
     Active Substance: TRAVOPROST
     Route: 047
  25. DULOXETINE HYDROCHLORIDE. [Concomitant]
     Active Substance: DULOXETINE HYDROCHLORIDE
     Route: 048
  26. FERROUS GLUCONATE [Concomitant]
     Active Substance: FERROUS GLUCONATE
  27. IBUPROFEN. [Concomitant]
     Active Substance: IBUPROFEN
     Route: 048
  28. KYNAMRO [Suspect]
     Active Substance: MIPOMERSEN SODIUM
     Indication: TYPE IIA HYPERLIPIDAEMIA
     Route: 065
     Dates: start: 20140915, end: 20150115
  29. BRIMONIDINE TARTRATE. [Concomitant]
     Active Substance: BRIMONIDINE TARTRATE
     Route: 047
  30. MONTELUKAST SODIUM. [Concomitant]
     Active Substance: MONTELUKAST SODIUM
     Route: 048

REACTIONS (4)
  - Fatigue [Recovered/Resolved]
  - Hepatic enzyme increased [Recovered/Resolved]
  - Injection site swelling [Recovered/Resolved]
  - Injection site erythema [Recovered/Resolved]

NARRATIVE: CASE EVENT DATE: 201409
